FAERS Safety Report 15981713 (Version 2)
Quarter: 2019Q1

REPORT INFORMATION
  Report Type: Report from Study
  Country: US (occurrence: US)
  Receive Date: 20190219
  Receipt Date: 20190301
  Transmission Date: 20190418
  Serious: Yes (Life-Threatening, Hospitalization, Other)
  Sender: FDA-Public Use
  Company Number: US-TESARO-2019-TSO00957-US

PATIENT
  Age: 50 Year
  Sex: Female

DRUGS (1)
  1. ZEJULA [Suspect]
     Active Substance: NIRAPARIB
     Indication: PRODUCT USED FOR UNKNOWN INDICATION
     Dosage: 300 MG, QD
     Route: 065
     Dates: start: 20190131, end: 20190215

REACTIONS (4)
  - Blindness transient [Unknown]
  - Cerebral haemorrhage [Unknown]
  - Seizure [Unknown]
  - Tongue injury [Unknown]

NARRATIVE: CASE EVENT DATE: 201902
